FAERS Safety Report 7588349-5 (Version None)
Quarter: 2011Q3

REPORT INFORMATION
  Report Type: 
  Country: None (occurrence: None)
  Receive Date: 20110705
  Receipt Date: 20110622
  Transmission Date: 20111222
  Serious: Yes (Other)
  Sender: FDA-Public Use
  Company Number: BR-US-EMD SERONO, INC.-7064222

PATIENT
  Sex: Female

DRUGS (5)
  1. REBIF [Suspect]
     Indication: RELAPSING-REMITTING MULTIPLE SCLEROSIS
     Dates: start: 20100828
  2. ACETAMINOPHEN [Concomitant]
  3. VTIAMIN D [Concomitant]
  4. ABLOK PLUS [Concomitant]
  5. AMYTRIL [Concomitant]

REACTIONS (3)
  - ANXIETY [None]
  - HEPATIC NEOPLASM [None]
  - LIVER FUNCTION TEST ABNORMAL [None]
